FAERS Safety Report 14826911 (Version 2)
Quarter: 2018Q2

REPORT INFORMATION
  Report Type: Spontaneous
  Country: US (occurrence: US)
  Receive Date: 20180430
  Receipt Date: 20180507
  Transmission Date: 20180711
  Serious: Yes (Hospitalization, Other)
  Sender: FDA-Public Use
  Company Number: US-AUROBINDO-AUR-APL-2018-023043

PATIENT
  Age: 17 Year
  Sex: Male

DRUGS (15)
  1. ESCITALOPRAM [Suspect]
     Active Substance: ESCITALOPRAM OXALATE
     Dosage: ()
     Route: 048
  2. VENLAFAXINE [Suspect]
     Active Substance: VENLAFAXINE HYDROCHLORIDE
     Indication: PRODUCT USED FOR UNKNOWN INDICATION
     Route: 048
  3. VENLAFAXINE [Suspect]
     Active Substance: VENLAFAXINE HYDROCHLORIDE
     Dosage: ()
     Route: 048
  4. BUSPIRONE HYDROCHLORIDE. [Suspect]
     Active Substance: BUSPIRONE HYDROCHLORIDE
     Dosage: ()
     Route: 048
  5. FLUOXETINE [Suspect]
     Active Substance: FLUOXETINE HYDROCHLORIDE
     Indication: PRODUCT USED FOR UNKNOWN INDICATION
     Route: 048
  6. HYDROCHLOROTHIAZIDE. [Suspect]
     Active Substance: HYDROCHLOROTHIAZIDE
     Indication: PRODUCT USED FOR UNKNOWN INDICATION
     Route: 048
  7. HYDROCHLOROTHIAZIDE. [Suspect]
     Active Substance: HYDROCHLOROTHIAZIDE
     Dosage: ()
     Route: 048
  8. AMLODIPINE [Suspect]
     Active Substance: AMLODIPINE BESYLATE
     Indication: PRODUCT USED FOR UNKNOWN INDICATION
     Route: 048
  9. ESCITALOPRAM [Suspect]
     Active Substance: ESCITALOPRAM OXALATE
     Indication: PRODUCT USED FOR UNKNOWN INDICATION
     Route: 048
  10. AMLODIPINE [Suspect]
     Active Substance: AMLODIPINE BESYLATE
     Dosage: ()
     Route: 048
  11. ATORVASTATIN [Suspect]
     Active Substance: ATORVASTATIN
     Indication: PRODUCT USED FOR UNKNOWN INDICATION
     Route: 048
  12. BUSPIRONE HYDROCHLORIDE. [Suspect]
     Active Substance: BUSPIRONE HYDROCHLORIDE
     Indication: PRODUCT USED FOR UNKNOWN INDICATION
     Route: 048
  13. FLUOXETINE [Suspect]
     Active Substance: FLUOXETINE HYDROCHLORIDE
     Dosage: ()
     Route: 048
  14. AMFETAMINE W/DEXAMFETAMINE [Suspect]
     Active Substance: AMPHETAMINE SULFATE\DEXTROAMPHETAMINE
     Indication: PRODUCT USED FOR UNKNOWN INDICATION
     Route: 048
  15. ATORVASTATIN [Suspect]
     Active Substance: ATORVASTATIN
     Dosage: ()
     Route: 048

REACTIONS (9)
  - Bradycardia [Unknown]
  - Rhabdomyolysis [Recovered/Resolved]
  - Overdose [Recovered/Resolved]
  - Electrocardiogram QRS complex prolonged [Unknown]
  - Intentional overdose [Unknown]
  - Cardiogenic shock [Unknown]
  - Suicide attempt [Recovered/Resolved]
  - Seizure [Recovered/Resolved]
  - Muscle necrosis [Recovered/Resolved]
